FAERS Safety Report 5228798-3 (Version None)
Quarter: 2007Q1

REPORT INFORMATION
  Report Type: 
  Country: None (occurrence: None)
  Receive Date: 20070131
  Receipt Date: 20070118
  Transmission Date: 20070707
  Serious: Yes (Hospitalization)
  Sender: FDA-Public Use
  Company Number: D-07-0009

PATIENT
  Age: 78 Year
  Sex: Male

DRUGS (1)
  1. JANTOVEN [Suspect]
     Dosage: PO
     Route: 048

REACTIONS (3)
  - HEADACHE [None]
  - PROTHROMBIN TIME ABNORMAL [None]
  - SUBDURAL HAEMATOMA [None]
